FAERS Safety Report 4974963-X (Version None)
Quarter: 2006Q2

REPORT INFORMATION
  Report Type: 
  Country: None (occurrence: None)
  Receive Date: 20060414
  Receipt Date: 20060414
  Transmission Date: 20061013
  Serious: Yes (Hospitalization, Other)
  Sender: FDA-Public Use
  Company Number: None

PATIENT
  Sex: Male
  Weight: 69 kg

DRUGS (9)
  1. CYCLOPHOSPHAMIDE [Suspect]
     Indication: DIFFUSE LARGE B-CELL LYMPHOMA
     Dosage: 1417 MG
     Dates: start: 20060308, end: 20060313
  2. DOXORUBICIN HCL [Suspect]
     Dosage: 76 MG
     Dates: start: 20060308, end: 20060312
  3. ETOPOSIDE [Suspect]
     Dosage: 380 MG
     Dates: start: 20060308, end: 20060312
  4. G-CSF (FILGRASTIM, AMGEN) [Suspect]
     Dosage: 3000 MCG
     Dates: start: 20060308, end: 20060321
  5. PREDNISONE TAB [Suspect]
     Dosage: 550 MG
     Dates: start: 20060308, end: 20060313
  6. VINCRISTINE SULFATE [Suspect]
     Dosage: 3.04 MG
     Dates: start: 20060308, end: 20060312
  7. BACTRIM DS [Concomitant]
  8. KALETRA [Concomitant]
  9. TRUVADA [Concomitant]

REACTIONS (6)
  - ANAEMIA [None]
  - DEHYDRATION [None]
  - DIARRHOEA [None]
  - NAUSEA [None]
  - NEUTROPENIA [None]
  - VOMITING [None]
